FAERS Safety Report 8818272 (Version 2)
Quarter: 2014Q2

REPORT INFORMATION
  Report Type: Report from Study
  Country: US (occurrence: US)
  Receive Date: 20121001
  Receipt Date: 20140219
  Transmission Date: 20141212
  Serious: Yes (Death)
  Sender: FDA-Public Use
  Company Number: US-ROCHE-1139234

PATIENT
  Sex: Female
  Weight: 57.66 kg

DRUGS (8)
  1. AVASTIN [Suspect]
     Indication: LUNG NEOPLASM MALIGNANT
     Route: 042
  2. AVASTIN [Suspect]
     Indication: MALIGNANT MELANOMA
  3. CARBOPLATIN [Concomitant]
     Dosage: AUC6
     Route: 042
  4. TAXOL [Concomitant]
     Route: 042
  5. DEXAMETHASONE [Concomitant]
     Route: 042
  6. DEXAMETHASONE [Concomitant]
     Dosage: 6 DOSES BEGINNING DAY 1 OF EACH CYCLE
     Route: 048
  7. RANITIDINE [Concomitant]
     Route: 042
  8. PALONOSETRON [Concomitant]
     Route: 042

REACTIONS (2)
  - Death [Fatal]
  - Disease progression [Unknown]
